FAERS Safety Report 9865161 (Version 1)
Quarter: 2014Q1

REPORT INFORMATION
  Report Type: Spontaneous
  Country: US (occurrence: US)
  Receive Date: 20140203
  Receipt Date: 20140203
  Transmission Date: 20141002
  Serious: Yes (Other)
  Sender: FDA-Public Use
  Company Number: PHHY2014US012138

PATIENT
  Age: 82 Year
  Sex: Female

DRUGS (4)
  1. GENTEAL [Suspect]
     Indication: LACRIMATION INCREASED
     Dosage: UNK UKN, UNK
     Dates: start: 20131223, end: 20131224
  2. FISH OIL [Concomitant]
     Dosage: UNK UKN, UNK
  3. PRESERVISION AREDS [Concomitant]
     Dosage: UNK UKN, UNK
  4. RESTASIS [Concomitant]
     Dosage: UNK UKN, UNK

REACTIONS (11)
  - Pain [Recovering/Resolving]
  - Eyelid margin crusting [Recovering/Resolving]
  - Headache [Recovering/Resolving]
  - Abnormal sensation in eye [Recovering/Resolving]
  - Throat irritation [Recovering/Resolving]
  - Vomiting [Recovering/Resolving]
  - Drug hypersensitivity [Recovering/Resolving]
  - Eye irritation [Recovering/Resolving]
  - Eye pruritus [Recovering/Resolving]
  - Lacrimation increased [Recovering/Resolving]
  - Vision blurred [Recovering/Resolving]
